FAERS Safety Report 25346739 (Version 1)
Quarter: 2025Q2

REPORT INFORMATION
  Report Type: Spontaneous
  Country: US (occurrence: None)
  Receive Date: 20250521
  Receipt Date: 20250521
  Transmission Date: 20250717
  Serious: Yes (Hospitalization)
  Sender: FDA-CTU
  Company Number: None

PATIENT
  Age: 58 Year
  Sex: Male
  Weight: 145 kg

DRUGS (2)
  1. CIPROFLOXACIN [Suspect]
     Active Substance: CIPROFLOXACIN
     Indication: Diabetic foot infection
     Dosage: FREQUENCY : TWICE A DAY;?
     Route: 048
  2. CLINDAMYCIN HYDROCHLORIDE [Suspect]
     Active Substance: CLINDAMYCIN HYDROCHLORIDE
     Dosage: FREQUENCY : 4 TIMES A DAY;?
     Route: 048

REACTIONS (4)
  - Hypotension [None]
  - Rash [None]
  - Lactic acidosis [None]
  - Acute kidney injury [None]

NARRATIVE: CASE EVENT DATE: 20240610
